FAERS Safety Report 11698805 (Version 1)
Quarter: 2015Q4

REPORT INFORMATION
  Report Type: Spontaneous
  Country: US (occurrence: US)
  Receive Date: 20151104
  Receipt Date: 20151104
  Transmission Date: 20160304
  Serious: No
  Sender: FDA-Public Use
  Company Number: US-ELI_LILLY_AND_COMPANY-US201101002764

PATIENT
  Sex: Female

DRUGS (4)
  1. ORENCIA [Concomitant]
     Active Substance: ABATACEPT
  2. FORTEO [Suspect]
     Active Substance: TERIPARATIDE
     Indication: OSTEOPOROSIS
     Dosage: 20 UG, DAILY (1/D)
     Dates: start: 200907
  3. XANAX [Concomitant]
     Active Substance: ALPRAZOLAM
  4. BIAXIN [Concomitant]
     Active Substance: CLARITHROMYCIN

REACTIONS (8)
  - Pneumonia [Unknown]
  - Cough [Unknown]
  - Sinusitis [Not Recovered/Not Resolved]
  - Nasal congestion [Unknown]
  - Rhinorrhoea [Unknown]
  - Bronchitis [Recovering/Resolving]
  - Asthma [Unknown]
  - Pulmonary mass [Unknown]
